FAERS Safety Report 14562434 (Version 1)
Quarter: 2018Q1

REPORT INFORMATION
  Report Type: Spontaneous
  Country: US (occurrence: US)
  Receive Date: 20180221
  Receipt Date: 20180221
  Transmission Date: 20180509
  Serious: Yes (Hospitalization)
  Sender: FDA-Public Use
  Company Number: None

PATIENT
  Age: 68 Year
  Sex: Male

DRUGS (1)
  1. NITROFURANTOIN. [Suspect]
     Active Substance: NITROFURANTOIN
     Indication: PROPHYLAXIS URINARY TRACT INFECTION
     Route: 048
     Dates: start: 20170210, end: 20171205

REACTIONS (10)
  - Dyspnoea [None]
  - Pneumonitis [None]
  - Myocardial ischaemia [None]
  - Wheezing [None]
  - Drug intolerance [None]
  - Wound [None]
  - Cough [None]
  - Choking [None]
  - Nervous system disorder [None]
  - Pulmonary oedema [None]

NARRATIVE: CASE EVENT DATE: 20171012
